FAERS Safety Report 5504256-3 (Version None)
Quarter: 2007Q4

REPORT INFORMATION
  Report Type: 
  Country: None (occurrence: None)
  Receive Date: 20071101
  Receipt Date: 20071024
  Transmission Date: 20080405
  Serious: Yes (Other)
  Sender: FDA-Public Use
  Company Number: FR-BRISTOL-MYERS SQUIBB COMPANY-13955372

PATIENT
  Age: 34 Year
  Sex: Female
  Weight: 97 kg

DRUGS (1)
  1. ORENCIA [Suspect]
     Indication: RHEUMATOID ARTHRITIS
     Dosage: ANOTHER BATCH NUMBER -  7F31306
     Route: 042
     Dates: start: 20070925, end: 20071023

REACTIONS (8)
  - AMENORRHOEA [None]
  - BLOOD PRESSURE SYSTOLIC DECREASED [None]
  - CHEST PAIN [None]
  - COUGH [None]
  - DYSPNOEA [None]
  - HEADACHE [None]
  - MUSCULOSKELETAL CHEST PAIN [None]
  - NAUSEA [None]
